FAERS Safety Report 24443982 (Version 3)
Quarter: 2025Q1

REPORT INFORMATION
  Report Type: Report from Study
  Country: US (occurrence: US)
  Receive Date: 20241016
  Receipt Date: 20250331
  Transmission Date: 20250409
  Serious: Yes (Other)
  Sender: BAYER HEALTHCARE PHARMACEUTICALS INC.
  Company Number: US-BAYER-2024A144680

PATIENT
  Age: 76 Year
  Sex: Male
  Weight: 90.703 kg

DRUGS (13)
  1. ADEMPAS [Suspect]
     Active Substance: RIOCIGUAT
     Indication: Pulmonary arterial hypertension
     Dates: start: 20240227
  2. ADEMPAS [Suspect]
     Active Substance: RIOCIGUAT
     Indication: Pulmonary arterial hypertension
     Dosage: 1.5 MG, TID
     Route: 048
  3. ADEMPAS [Suspect]
     Active Substance: RIOCIGUAT
     Indication: Pulmonary arterial hypertension
     Dosage: 1.5 MG, TID
     Route: 048
  4. POTASSIUM CHLORIDE [Concomitant]
     Active Substance: POTASSIUM CHLORIDE
  5. SPIRIVA [Concomitant]
     Active Substance: TIOTROPIUM BROMIDE MONOHYDRATE
  6. PANTOPRAZOLE SODIUM [Concomitant]
     Active Substance: PANTOPRAZOLE SODIUM
  7. INCRUSE ELLIPTA [Concomitant]
     Active Substance: UMECLIDINIUM BROMIDE
  8. PRADAXA [Concomitant]
     Active Substance: DABIGATRAN ETEXILATE MESYLATE
  9. METOPROLOL SUCCINATE [Concomitant]
     Active Substance: METOPROLOL SUCCINATE
  10. METFORMIN HYDROCHLORIDE [Concomitant]
     Active Substance: METFORMIN HYDROCHLORIDE
  11. FUROSEMIDE [Concomitant]
     Active Substance: FUROSEMIDE
  12. FERROUS SULFATE [Concomitant]
     Active Substance: FERROUS SULFATE
  13. Dulcolax [Concomitant]

REACTIONS (15)
  - Peripheral swelling [Not Recovered/Not Resolved]
  - Pain in extremity [None]
  - Mitral valve incompetence [None]
  - Thrombosis [None]
  - Diabetes mellitus [None]
  - Elephantiasis [None]
  - Ear disorder [None]
  - Deafness [None]
  - Venous haemorrhage [None]
  - Dizziness postural [None]
  - Vertigo positional [None]
  - Cyst [None]
  - Hypoacusis [Not Recovered/Not Resolved]
  - Oxygen saturation decreased [None]
  - Cardiac valve disease [None]
